FAERS Safety Report 11663113 (Version 1)
Quarter: 2015Q4

REPORT INFORMATION
  Report Type: Spontaneous
  Country: US (occurrence: US)
  Receive Date: 20151027
  Receipt Date: 20151027
  Transmission Date: 20160304
  Serious: No
  Sender: FDA-Public Use
  Company Number: US-MEDA-2011010061

PATIENT
  Age: 52 Year
  Sex: Male

DRUGS (4)
  1. OPANA ER [Suspect]
     Active Substance: OXYMORPHONE HYDROCHLORIDE
     Indication: PAIN
  2. ONSOLIS [Suspect]
     Active Substance: FENTANYL CITRATE
     Indication: PROCTALGIA
     Dosage: TITRATED UP TO 4-200 MCG FILMS
     Route: 002
     Dates: start: 20110120
  3. OPANA ER [Suspect]
     Active Substance: OXYMORPHONE HYDROCHLORIDE
     Indication: PAIN
  4. ONSOLIS [Suspect]
     Active Substance: FENTANYL CITRATE
     Indication: PAIN
     Dosage: TITRATED UP TO 4-200 MCG FILMS
     Route: 002
     Dates: start: 20110120

REACTIONS (1)
  - Somnolence [Recovered/Resolved]

NARRATIVE: CASE EVENT DATE: 20110127
